FAERS Safety Report 25767562 (Version 1)
Quarter: 2025Q3

REPORT INFORMATION
  Report Type: Spontaneous
  Country: US (occurrence: None)
  Receive Date: 20250904
  Receipt Date: 20250904
  Transmission Date: 20251021
  Serious: No
  Sender: FDA-CTU
  Company Number: None

PATIENT
  Age: 53 Year
  Sex: Female
  Weight: 64.35 kg

DRUGS (1)
  1. RINVOQ [Suspect]
     Active Substance: UPADACITINIB
     Indication: Colitis ulcerative
     Dosage: FREQUENCY : DAILY;?
     Route: 048
     Dates: start: 20250428, end: 20250815

REACTIONS (7)
  - Peripheral swelling [None]
  - Peripheral swelling [None]
  - Rash [None]
  - Rash [None]
  - Therapy change [None]
  - Liver function test increased [None]
  - Weight increased [None]

NARRATIVE: CASE EVENT DATE: 20250430
